FAERS Safety Report 22063084 (Version 18)
Quarter: 2025Q4

REPORT INFORMATION
  Report Type: Report from Study
  Country: EU (occurrence: EU)
  Receive Date: 20230306
  Receipt Date: 20251224
  Transmission Date: 20260117
  Serious: Yes (Death, Life-Threatening, Hospitalization, Disabling, Other)
  Sender: ROCHE
  Company Number: EU-ROCHE-3140387

PATIENT
  Age: 66 Year
  Sex: Male
  Weight: 66 kg

DRUGS (27)
  1. HEMLIBRA [Suspect]
     Active Substance: EMICIZUMAB-KXWH
     Indication: Haemophilia A with anti factor VIII
     Route: 058
     Dates: start: 20210419, end: 20210510
  2. HEMLIBRA [Suspect]
     Active Substance: EMICIZUMAB-KXWH
     Dosage: MOST RECENT DOSE: 18/OCT/2022
     Route: 058
     Dates: start: 20210517, end: 20221018
  3. REFACTO [Concomitant]
     Active Substance: MOROCTOCOG ALFA
     Indication: Prophylaxis
     Route: 042
     Dates: start: 2000, end: 20210418
  4. REFACTO [Concomitant]
     Active Substance: MOROCTOCOG ALFA
     Route: 042
     Dates: start: 20211116, end: 20211123
  5. VALSARTAN [Concomitant]
     Active Substance: VALSARTAN
     Indication: Hypertension
     Route: 048
     Dates: start: 2013
  6. TORSEMIDE [Concomitant]
     Active Substance: TORSEMIDE
     Indication: Hypertension
     Route: 048
  7. XIPAMIDE [Concomitant]
     Active Substance: XIPAMIDE
     Indication: Hypertension
     Route: 048
  8. FOSRENOL [Concomitant]
     Active Substance: LANTHANUM CARBONATE
     Indication: End stage renal disease
     Route: 048
     Dates: start: 2017
  9. CINACALCET HYDROCHLORIDE [Concomitant]
     Active Substance: CINACALCET HYDROCHLORIDE
     Indication: Hyperparathyroidism secondary
     Route: 048
     Dates: start: 2017
  10. ERYTHROPOIETIN [Concomitant]
     Active Substance: ERYTHROPOIETIN
     Indication: End stage renal disease
     Route: 042
     Dates: start: 2017
  11. ELOCTA [Concomitant]
     Active Substance: EFMOROCTOCOG ALFA
     Route: 042
     Dates: start: 20210629, end: 20210629
  12. ELOCTA [Concomitant]
     Active Substance: EFMOROCTOCOG ALFA
     Route: 042
     Dates: start: 20211125, end: 20211125
  13. ELOCTA [Concomitant]
     Active Substance: EFMOROCTOCOG ALFA
     Route: 042
     Dates: start: 20211126, end: 20211204
  14. ELOCTA [Concomitant]
     Active Substance: EFMOROCTOCOG ALFA
     Route: 042
     Dates: start: 20220127, end: 20220128
  15. ELOCTA [Concomitant]
     Active Substance: EFMOROCTOCOG ALFA
     Route: 042
     Dates: start: 20220129, end: 20220129
  16. ELOCTA [Concomitant]
     Active Substance: EFMOROCTOCOG ALFA
     Route: 042
     Dates: start: 20220131, end: 20220131
  17. ELOCTA [Concomitant]
     Active Substance: EFMOROCTOCOG ALFA
     Route: 042
     Dates: start: 20220718, end: 20220718
  18. ELOCTA [Concomitant]
     Active Substance: EFMOROCTOCOG ALFA
     Route: 042
     Dates: start: 20220718, end: 20220718
  19. MODERNA COVID-19 VACCINE [Concomitant]
     Active Substance: ELASOMERAN
     Indication: Prophylaxis
     Route: 030
     Dates: start: 20211109, end: 20211109
  20. ASPIRIN [Concomitant]
     Active Substance: ASPIRIN
     Route: 048
  21. CLOPIDOGREL [Concomitant]
     Active Substance: CLOPIDOGREL BISULFATE
     Route: 048
     Dates: start: 20220924
  22. TENOFOVIR [Concomitant]
     Active Substance: TENOFOVIR
  23. ENTECAVIR [Concomitant]
     Active Substance: ENTECAVIR
  24. CARVEDILOL [Concomitant]
     Active Substance: CARVEDILOL
  25. RAMIPRIL [Concomitant]
     Active Substance: RAMIPRIL
  26. BERIATE [Concomitant]
     Active Substance: ANTIHEMOPHILIC FACTOR HUMAN
  27. Eisen [Concomitant]

REACTIONS (8)
  - Incarcerated umbilical hernia [Recovered/Resolved]
  - Ischaemic cardiomyopathy [Recovered/Resolved with Sequelae]
  - Coronary artery disease [Recovered/Resolved]
  - Cardiac failure [Not Recovered/Not Resolved]
  - Hepatic cirrhosis [Recovered/Resolved with Sequelae]
  - Death [Fatal]
  - Ascites [Recovered/Resolved]
  - Varices oesophageal [Not Recovered/Not Resolved]

NARRATIVE: CASE EVENT DATE: 20220324
